FAERS Safety Report 8525990-7 (Version None)
Quarter: 2012Q3

REPORT INFORMATION
  Report Type: 
  Country: None (occurrence: None)
  Receive Date: 20120720
  Receipt Date: 20120629
  Transmission Date: 20120928
  Serious: Yes (Other)
  Sender: FDA-Public Use
  Company Number: CHPA2012US011472

PATIENT
  Age: 73 Year
  Sex: Female

DRUGS (5)
  1. TYLENOL [Concomitant]
     Dosage: UNK, UNK
     Route: 048
  2. ASPIRIN [Concomitant]
     Dosage: UNK, UNK
  3. EXCEDRIN EXTRA STRENGTH TABLETS [Suspect]
     Indication: PAIN
     Dosage: 2 DF, QD
     Route: 048
     Dates: start: 19630101, end: 20120601
  4. DISALCID [Suspect]
     Dosage: UNK, UNK
  5. EXCEDRIN EXTRA STRENGTH TABLETS [Suspect]
     Dosage: UNK, UNK
     Route: 048
     Dates: start: 19650101, end: 19920101

REACTIONS (13)
  - RHEUMATOID ARTHRITIS [None]
  - OEDEMA PERIPHERAL [None]
  - ABDOMINAL DISCOMFORT [None]
  - MYOCARDIAL INFARCTION [None]
  - OSTEITIS [None]
  - DEAFNESS [None]
  - HEADACHE [None]
  - OFF LABEL USE [None]
  - GAIT DISTURBANCE [None]
  - INCORRECT DRUG ADMINISTRATION DURATION [None]
  - VOMITING [None]
  - THERAPEUTIC RESPONSE UNEXPECTED [None]
  - NERVOUSNESS [None]
